FAERS Safety Report 6819528-X (Version None)
Quarter: 2010Q3

REPORT INFORMATION
  Report Type: 
  Country: None (occurrence: None)
  Receive Date: 20100707
  Receipt Date: 20100702
  Transmission Date: 20110219
  Serious: Yes (Death)
  Sender: FDA-Public Use
  Company Number: PHHY2010US43959

PATIENT
  Sex: Female
  Weight: 65.76 kg

DRUGS (1)
  1. EXJADE [Suspect]
     Indication: NEOPLASM
     Dosage: 1250 MG
     Route: 048
     Dates: start: 20091209, end: 20100604

REACTIONS (1)
  - DEATH [None]
